FAERS Safety Report 6856727-5 (Version None)
Quarter: 2010Q3

REPORT INFORMATION
  Report Type: 
  Country: None (occurrence: None)
  Receive Date: 20100719
  Receipt Date: 20100707
  Transmission Date: 20110219
  Serious: Yes (Other)
  Sender: FDA-Public Use
  Company Number: US-PFIZER INC-2010057349

PATIENT
  Sex: Female
  Weight: 53.523 kg

DRUGS (7)
  1. CHANTIX [Suspect]
     Indication: SMOKING CESSATION THERAPY
     Dosage: 0.5 MG, 1X/DAY
     Route: 048
     Dates: start: 20100301, end: 20100101
  2. CHANTIX [Suspect]
     Indication: NICOTINE DEPENDENCE
     Dosage: 1 MG, 2X/DAY
     Route: 048
     Dates: start: 20100403, end: 20100411
  3. CHANTIX [Suspect]
     Dosage: 0.5 MG, 2X/DAY
     Route: 048
     Dates: start: 20100614
  4. ACETYLSALICYLIC ACID [Concomitant]
     Dosage: UNK
  5. LABETALOL [Concomitant]
     Indication: HYPERTENSION
     Dosage: 100 MG, DAILY
  6. TIAZAC [Concomitant]
     Indication: HYPERTENSION
     Dosage: UNK
  7. DILTIAZEM [Concomitant]
     Dosage: 360 MG, DAILY

REACTIONS (4)
  - CHRONIC OBSTRUCTIVE PULMONARY DISEASE [None]
  - CONSTIPATION [None]
  - NAUSEA [None]
  - VOMITING [None]
